FAERS Safety Report 8486072-6 (Version None)
Quarter: 2012Q3

REPORT INFORMATION
  Report Type: 
  Country: None (occurrence: None)
  Receive Date: 20120703
  Receipt Date: 20120626
  Transmission Date: 20120928
  Serious: Yes (Hospitalization, Other)
  Sender: FDA-Public Use
  Company Number: US-JNJFOC-20120307094

PATIENT
  Sex: Male
  Weight: 32.7 kg

DRUGS (1)
  1. INFLIXIMAB, RECOMBINANT [Suspect]
     Indication: INFLAMMATORY BOWEL DISEASE
     Route: 042
     Dates: start: 20080318, end: 20101222

REACTIONS (2)
  - CROHN'S DISEASE [None]
  - MALNUTRITION [None]
